FAERS Safety Report 4753223-6 (Version None)
Quarter: 2005Q3

REPORT INFORMATION
  Report Type: 
  Country: None (occurrence: None)
  Receive Date: 20050824
  Receipt Date: 20050817
  Transmission Date: 20060218
  Serious: Yes (Hospitalization)
  Sender: FDA-Public Use
  Company Number: SU-2005-003917

PATIENT

DRUGS (2)
  1. BENICAR [Suspect]
     Dosage: PO
     Route: 048
  2. BENICAR HCT [Suspect]
     Dosage: PO
     Route: 048

REACTIONS (1)
  - AZOTAEMIA [None]
